FAERS Safety Report 20972273 (Version 1)
Quarter: 2022Q2

REPORT INFORMATION
  Report Type: Spontaneous
  Country: FR (occurrence: FR)
  Receive Date: 20220616
  Receipt Date: 20220616
  Transmission Date: 20220720
  Serious: Yes (Other)
  Sender: FDA-Public Use
  Company Number: FR-CELGENE-FRA-20220302730

PATIENT
  Age: 69 Year
  Sex: Female

DRUGS (3)
  1. LENALIDOMIDE [Suspect]
     Active Substance: LENALIDOMIDE
     Indication: Diffuse large B-cell lymphoma refractory
     Dosage: CONTINUED FOR 4 WEEKS
     Route: 065
  2. LENALIDOMIDE [Suspect]
     Active Substance: LENALIDOMIDE
     Dosage: 10 MILLIGRAM
     Route: 065
  3. TAFASITAMAB-CXIX [Suspect]
     Active Substance: TAFASITAMAB-CXIX
     Indication: Diffuse large B-cell lymphoma refractory
     Dosage: 12 MILLIGRAM/KILOGRAM
     Route: 065

REACTIONS (4)
  - Diffuse large B-cell lymphoma refractory [Unknown]
  - Haematotoxicity [Unknown]
  - Febrile bone marrow aplasia [Unknown]
  - Neutropenia [Unknown]
